FAERS Safety Report 8391348-7 (Version None)
Quarter: 2012Q2

REPORT INFORMATION
  Report Type: 
  Country: None (occurrence: None)
  Receive Date: 20120529
  Receipt Date: 20120503
  Transmission Date: 20120825
  Serious: No
  Sender: FDA-Public Use
  Company Number: US-JNJFOC-20120506857

PATIENT
  Age: 16 Year
  Sex: Female

DRUGS (4)
  1. CLOZARIL [Concomitant]
     Route: 065
  2. WELLBUTRIN [Concomitant]
     Route: 065
  3. INVEGA [Suspect]
     Indication: PRODUCT USED FOR UNKNOWN INDICATION
     Route: 048
  4. BUSPAR [Concomitant]
     Route: 065

REACTIONS (1)
  - AMENORRHOEA [None]
